FAERS Safety Report 6570356-2 (Version None)
Quarter: 2010Q1

REPORT INFORMATION
  Report Type: 
  Country: None (occurrence: None)
  Receive Date: 20100204
  Receipt Date: 20100128
  Transmission Date: 20100710
  Serious: Yes (Other)
  Sender: FDA-Public Use
  Company Number: JP-JNJFOC-20100106161

PATIENT
  Sex: Female

DRUGS (7)
  1. ITRIZOLE [Suspect]
     Indication: DRUG USE FOR UNKNOWN INDICATION
     Route: 048
  2. TRIAZOLAM [Interacting]
     Indication: DRUG USE FOR UNKNOWN INDICATION
     Route: 048
  3. UNKNOWN MEDICATION [Concomitant]
     Route: 048
  4. ANTI HYPERTENSIVE DRUG (NOS) [Concomitant]
     Route: 048
  5. HALCION [Concomitant]
     Route: 048
  6. TOWAMIN [Concomitant]
     Route: 048
  7. FOSAMAC [Concomitant]
     Route: 048

REACTIONS (5)
  - ALTERED STATE OF CONSCIOUSNESS [None]
  - BLOOD PRESSURE DECREASED [None]
  - DRUG INTERACTION [None]
  - INCOHERENT [None]
  - OEDEMA PERIPHERAL [None]
